FAERS Safety Report 6838765-1 (Version None)
Quarter: 2010Q3

REPORT INFORMATION
  Report Type: 
  Country: None (occurrence: None)
  Receive Date: 20100713
  Receipt Date: 20070803
  Transmission Date: 20110219
  Serious: No
  Sender: FDA-Public Use
  Company Number: US-PFIZER INC-2007049433

PATIENT
  Sex: Female
  Weight: 83.9 kg

DRUGS (22)
  1. CHANTIX [Suspect]
     Indication: SMOKING CESSATION THERAPY
     Route: 048
     Dates: start: 20070410, end: 20070424
  2. CENTRUM SILVER [Concomitant]
  3. PREMARIN [Concomitant]
  4. OMACOR [Concomitant]
  5. FOLIC ACID [Concomitant]
  6. ASACOL [Concomitant]
  7. MERCAPTOPURINE [Concomitant]
  8. VITAMIN C [Concomitant]
  9. VITAMIN D [Concomitant]
  10. ACIDOPHILUS [Concomitant]
  11. MAGNESIUM [Concomitant]
  12. HERBAL PREPARATION [Concomitant]
  13. CHONDROITIN/GLUCOSAMINE [Concomitant]
  14. FAMOTIDINE [Concomitant]
  15. BOSWELLIA SERRATA EXTRACT [Concomitant]
  16. BROMELAINS [Concomitant]
  17. LIPITOR [Concomitant]
  18. SIMVASTATIN [Concomitant]
  19. CYCLOBENZAPRINE [Concomitant]
  20. COENZYME Q10 [Concomitant]
  21. ACETYLSALICYLIC ACID [Concomitant]
  22. CORAL CALCIUM [Concomitant]

REACTIONS (4)
  - BRONCHITIS [None]
  - JOINT DISLOCATION [None]
  - MALAISE [None]
  - NAUSEA [None]
